FAERS Safety Report 10446884 (Version 1)
Quarter: 2014Q3

REPORT INFORMATION
  Report Type: Spontaneous
  Country: US (occurrence: US)
  Receive Date: 20140911
  Receipt Date: 20140911
  Transmission Date: 20150326
  Serious: No
  Sender: FDA-Public Use
  Company Number: US-009507513-1408USA017238

PATIENT
  Sex: Female

DRUGS (1)
  1. NEXPLANON [Suspect]
     Active Substance: ETONOGESTREL
     Indication: CONTRACEPTION
     Dosage: 68 MG, FREQUENCY: ONCE EVERY 3 YEARS; THERAPY ROUTE: IMPLANT
     Dates: start: 20140813

REACTIONS (2)
  - Product quality issue [Unknown]
  - Device kink [Not Recovered/Not Resolved]
